FAERS Safety Report 12378260 (Version 1)
Quarter: 2016Q2

REPORT INFORMATION
  Report Type: Spontaneous
  Country: US (occurrence: US)
  Receive Date: 20160517
  Receipt Date: 20160517
  Transmission Date: 20160815
  Serious: No
  Sender: FDA-Public Use
  Company Number: US-JNJFOC-20160406571

PATIENT
  Age: 79 Year
  Sex: Female
  Weight: 61.24 kg

DRUGS (2)
  1. DULOXETINE. [Concomitant]
     Active Substance: DULOXETINE
     Indication: FIBROMYALGIA
     Dosage: DAILY
     Route: 065
  2. TYLENOL REGULAR STRENGTH [Suspect]
     Active Substance: ACETAMINOPHEN
     Indication: PAIN
     Dosage: 1 LIQUID GEL EVERY 4-6 HOURS AS NEEDED
     Route: 048
     Dates: end: 20160405

REACTIONS (2)
  - Product size issue [Unknown]
  - Retching [Recovered/Resolved]

NARRATIVE: CASE EVENT DATE: 20160402
